FAERS Safety Report 24314694 (Version 1)
Quarter: 2024Q3

REPORT INFORMATION
  Report Type: Report from Study
  Country: CA (occurrence: None)
  Receive Date: 20240913
  Receipt Date: 20240913
  Transmission Date: 20241017
  Serious: Yes (Hospitalization)
  Sender: ASTRAZENECA
  Company Number: 2024A172723

PATIENT
  Sex: Male

DRUGS (4)
  1. FASENRA [Suspect]
     Active Substance: BENRALIZUMAB
     Indication: Asthma
     Dosage: 30.0MG UNKNOWN
     Route: 058
     Dates: start: 20230228
  2. FASENRA [Suspect]
     Active Substance: BENRALIZUMAB
     Indication: Asthma
     Dosage: UNKNOWN
     Route: 058
     Dates: start: 20240604
  3. FLOVENT [Concomitant]
     Active Substance: FLUTICASONE PROPIONATE
     Dosage: : 2 PUFFS BID
  4. PREDNISONE [Concomitant]
     Active Substance: PREDNISONE
     Route: 048

REACTIONS (1)
  - Fall [Unknown]
